FAERS Safety Report 13106163 (Version 1)
Quarter: 2017Q1

REPORT INFORMATION
  Report Type: Spontaneous
  Country: US (occurrence: US)
  Receive Date: 20170111
  Receipt Date: 20170111
  Transmission Date: 20170428
  Serious: No
  Sender: FDA-Public Use
  Company Number: US-PFIZER INC-2016421464

PATIENT
  Age: 65 Year

DRUGS (2)
  1. MARCAINE [Suspect]
     Active Substance: BUPIVACAINE HYDROCHLORIDE
     Indication: GENERAL ANAESTHESIA
     Dosage: UNK 7.5 MG IN 1 ML
  2. DEXTROSE. [Suspect]
     Active Substance: DEXTROSE
     Dosage: UNK 82.5 MG/ML IN 2 ML AMPULE

REACTIONS (1)
  - Drug ineffective [Unknown]
